FAERS Safety Report 18215909 (Version 1)
Quarter: 2020Q3

REPORT INFORMATION
  Report Type: Spontaneous
  Country: US (occurrence: US)
  Receive Date: 20200901
  Receipt Date: 20200901
  Transmission Date: 20201103
  Serious: Yes (Death, Disabling, Other)
  Sender: FDA-Public Use
  Company Number: US-ASTELLAS-2020US029033

PATIENT
  Sex: Male

DRUGS (2)
  1. NEULASTA [Concomitant]
     Active Substance: PEGFILGRASTIM
     Indication: PRODUCT USED FOR UNKNOWN INDICATION
     Dosage: UNK UNK, UNKNOWN FREQ.
     Route: 065
  2. PADCEV [Suspect]
     Active Substance: ENFORTUMAB VEDOTIN-EJFV
     Indication: PRODUCT USED FOR UNKNOWN INDICATION
     Dosage: 117 MG, UNKNOWN FREQ. (THREE TIMES ON CYCLE 1, DAY 1, 8,15)
     Route: 065
     Dates: start: 20200729, end: 20200812

REACTIONS (13)
  - Fatigue [Fatal]
  - Diarrhoea [Fatal]
  - Blood creatinine increased [Fatal]
  - Decreased appetite [Fatal]
  - Blood lactate dehydrogenase increased [Fatal]
  - Dehydration [Fatal]
  - Blood glucose increased [Fatal]
  - Blood bilirubin increased [Fatal]
  - Red cell distribution width increased [Fatal]
  - Weight decreased [Fatal]
  - Pancytopenia [Fatal]
  - Vomiting [Fatal]
  - Nausea [Fatal]

NARRATIVE: CASE EVENT DATE: 202008
